FAERS Safety Report 9440598 (Version 3)
Quarter: 2014Q1

REPORT INFORMATION
  Report Type: Spontaneous
  Country: GB (occurrence: GB)
  Receive Date: 20130805
  Receipt Date: 20140123
  Transmission Date: 20141002
  Serious: Yes (Death, Other)
  Sender: FDA-Public Use
  Company Number: GB-PFIZER INC-2013222341

PATIENT
  Age: 67 Year
  Sex: Male

DRUGS (5)
  1. LINEZOLID [Suspect]
     Dosage: UNK
     Dates: start: 20130222, end: 20130402
  2. CUBICIN [Suspect]
     Indication: STAPHYLOCOCCAL INFECTION
     Dosage: 6 MG/KG, ALTERNATE DAY
     Route: 042
     Dates: start: 20130222
  3. CUBICIN [Suspect]
     Dosage: 120 DF
     Dates: start: 20130419, end: 20130429
  4. MEROPENEM [Suspect]
     Indication: PRODUCT USED FOR UNKNOWN INDICATION
     Dosage: UNK
     Route: 042
  5. SODIUM FUSIDATE [Suspect]
     Dosage: UNK

REACTIONS (8)
  - Death [Fatal]
  - Pulmonary mass [Unknown]
  - Splenic embolism [Unknown]
  - Somnolence [Unknown]
  - Neurotoxicity [Unknown]
  - Thrombocytopenia [Unknown]
  - Cardiac valve vegetation [Unknown]
  - Anaemia [Recovered/Resolved]
